FAERS Safety Report 5964977-5 (Version None)
Quarter: 2008Q4

REPORT INFORMATION
  Report Type: 
  Country: None (occurrence: None)
  Receive Date: 20081121
  Receipt Date: 20081110
  Transmission Date: 20090506
  Serious: Yes (Other)
  Sender: FDA-Public Use
  Company Number: 08H-163-0315176-00

PATIENT
  Age: 50 Year
  Sex: Female

DRUGS (3)
  1. DOBUTAMINE HCL [Suspect]
     Indication: CARDIAC STRESS TEST
     Dosage: 20 MCG/KG/MIN
  2. ESCITALOPRAM [Concomitant]
  3. ALBUTEROL [Concomitant]

REACTIONS (16)
  - ATRIOVENTRICULAR BLOCK COMPLETE [None]
  - BACK PAIN [None]
  - BLOOD PRESSURE INCREASED [None]
  - CARDIOMEGALY [None]
  - DYSPNOEA [None]
  - ELECTROCARDIOGRAM QT PROLONGED [None]
  - ELECTROCARDIOGRAM QT SHORTENED [None]
  - ELECTROCARDIOGRAM T WAVE ABNORMAL [None]
  - HAEMOGLOBIN DECREASED [None]
  - HYPERHIDROSIS [None]
  - HYPOTENSION [None]
  - LEFT VENTRICULAR DYSFUNCTION [None]
  - NAUSEA [None]
  - PALLOR [None]
  - PRESYNCOPE [None]
  - PULMONARY CONGESTION [None]
